FAERS Safety Report 14352182 (Version 1)
Quarter: 2018Q1

REPORT INFORMATION
  Report Type: Spontaneous
  Country: US (occurrence: US)
  Receive Date: 20180104
  Receipt Date: 20180104
  Transmission Date: 20180509
  Serious: No
  Sender: FDA-Public Use
  Company Number: US-BAYER-2017-249302

PATIENT
  Age: 67 Year
  Sex: Female
  Weight: 67.98 kg

DRUGS (21)
  1. OLOPATADINE HYDROCHLORIDE. [Concomitant]
     Active Substance: OLOPATADINE HYDROCHLORIDE
  2. CYMBALTA [Concomitant]
     Active Substance: DULOXETINE HYDROCHLORIDE
     Route: 065
  3. MUSASHI L-ARGININE AMINO ACID [Concomitant]
  4. OLOPATADINE HYDROCHLORIDE. [Concomitant]
     Active Substance: OLOPATADINE HYDROCHLORIDE
  5. LUMIGAN [Concomitant]
     Active Substance: BIMATOPROST
  6. BIOTIN [Concomitant]
     Active Substance: BIOTIN
  7. SIMVASTATIN. [Concomitant]
     Active Substance: SIMVASTATIN
  8. DORZOLAMIDE W/TIMOLOL [Concomitant]
     Active Substance: DORZOLAMIDE HYDROCHLORIDE\TIMOLOL MALEATE
  9. COQ10 [Concomitant]
     Active Substance: UBIDECARENONE
     Route: 065
  10. ALEVE [Suspect]
     Active Substance: NAPROXEN SODIUM
     Indication: PAIN
     Dosage: 1 DF, QD
     Route: 048
     Dates: start: 2007
  11. ONE-A-DAY [MINERALS NOS,VITAMINS NOS] [Concomitant]
     Indication: NUTRITIONAL SUPPLEMENTATION
     Route: 048
  12. CLIMARA PRO [Concomitant]
     Active Substance: ESTRADIOL\LEVONORGESTREL
  13. L-CARNITINE [Concomitant]
     Active Substance: LEVOCARNITINE
     Route: 065
  14. PHILLIPS^ COLON HEALTH [Suspect]
     Active Substance: PROBIOTICS NOS
     Indication: GASTROINTESTINAL DISORDER
     Dosage: 1 DF, QD
     Route: 048
     Dates: start: 20171229
  15. BRIMONIDINE [Concomitant]
     Active Substance: BRIMONIDINE TARTRATE
  16. PREDNESOL [PREDNISOLONE ACETATE] [Concomitant]
     Route: 065
  17. FISH OIL [Concomitant]
     Active Substance: FISH OIL
     Route: 065
  18. MAGNESIUM [Concomitant]
     Active Substance: MAGNESIUM
  19. CHLORTHALIDONE. [Concomitant]
     Active Substance: CHLORTHALIDONE
  20. CALTRATE + D [CALCIUM CARBONATE,COLECALCIFEROL] [Concomitant]
  21. ACIDOPHILUS [Concomitant]
     Active Substance: LACTOBACILLUS ACIDOPHILUS

REACTIONS (6)
  - Nasopharyngitis [Unknown]
  - Abdominal distension [Unknown]
  - Diarrhoea [Unknown]
  - Rhinorrhoea [Unknown]
  - Constipation [Unknown]
  - Gastric dilatation [Unknown]
